FAERS Safety Report 12489078 (Version 5)
Quarter: 2017Q3

REPORT INFORMATION
  Report Type: Spontaneous
  Country: BR (occurrence: BR)
  Receive Date: 20160622
  Receipt Date: 20170927
  Transmission Date: 20171127
  Serious: Yes (Hospitalization, Other)
  Sender: FDA-Public Use
  Company Number: BR-PFIZER INC-2016307361

PATIENT
  Age: 51 Year
  Sex: Female
  Weight: 77 kg

DRUGS (6)
  1. EFFEXOR XR [Suspect]
     Active Substance: VENLAFAXINE HYDROCHLORIDE
     Indication: MALAISE
     Dosage: 75 MG, ALTERNATE DAY
     Route: 048
  2. EFFEXOR XR [Suspect]
     Active Substance: VENLAFAXINE HYDROCHLORIDE
     Indication: PAIN
     Dosage: 150 MG, UNK
     Route: 048
  3. EFFEXOR XR [Suspect]
     Active Substance: VENLAFAXINE HYDROCHLORIDE
     Indication: STRESS
  4. LEXOTAN [Concomitant]
     Active Substance: BROMAZEPAM
     Indication: PALPITATIONS
     Dosage: 0.5 TABLET SPORADICALLY
     Route: 048
  5. LEXOTAN [Concomitant]
     Active Substance: BROMAZEPAM
     Indication: BLOOD PRESSURE FLUCTUATION
  6. EFFEXOR XR [Suspect]
     Active Substance: VENLAFAXINE HYDROCHLORIDE
     Indication: MENTAL DISORDER

REACTIONS (10)
  - Breast cancer [Unknown]
  - Metastases to central nervous system [Not Recovered/Not Resolved]
  - Tremor [Not Recovered/Not Resolved]
  - Thyroid cancer [Unknown]
  - Cerebellar tumour [Not Recovered/Not Resolved]
  - Erythema [Unknown]
  - Breast cellulitis [Unknown]
  - Neoplasm [Unknown]
  - Breast enlargement [Unknown]
  - Depressed mood [Not Recovered/Not Resolved]

NARRATIVE: CASE EVENT DATE: 2012
